FAERS Safety Report 4985655-5 (Version None)
Quarter: 2006Q2

REPORT INFORMATION
  Report Type: 
  Country: None (occurrence: None)
  Receive Date: 20060428
  Receipt Date: 20050303
  Transmission Date: 20061013
  Serious: No
  Sender: FDA-Public Use
  Company Number: US-GLAXOSMITHKLINE-A0548210A

PATIENT
  Sex: Female

DRUGS (3)
  1. ZOFRAN [Suspect]
     Route: 042
     Dates: start: 20041001, end: 20041001
  2. ANTIBIOTIC [Concomitant]
  3. BENADRYL [Concomitant]

REACTIONS (1)
  - DRUG INEFFECTIVE [None]
